FAERS Safety Report 10645923 (Version 1)
Quarter: 2014Q4

REPORT INFORMATION
  Report Type: Spontaneous
  Country: CA (occurrence: None)
  Receive Date: 20141209
  Receipt Date: 20141209
  Transmission Date: 20150529
  Serious: Yes (Other)
  Sender: FDA-Public Use
  Company Number: 2652068

PATIENT
  Age: 6 Year
  Sex: Male
  Weight: 21.4 kg

DRUGS (8)
  1. ONDANSETRON [Concomitant]
     Active Substance: ONDANSETRON
  2. MITOXANTRONE HYDROCHLORIDE. [Suspect]
     Active Substance: MITOXANTRONE HYDROCHLORIDE
     Indication: ACUTE LEUKAEMIA
     Route: 042
     Dates: start: 20141113, end: 20141116
  3. FLUCONAZOLE. [Concomitant]
     Active Substance: FLUCONAZOLE
  4. CEFAZOLIN [Concomitant]
     Active Substance: CEFAZOLIN
  5. VANCOMYCIN [Concomitant]
     Active Substance: VANCOMYCIN
  6. PIPERACILLIN AND TAZOBACTAM [Concomitant]
     Active Substance: PIPERACILLIN SODIUM\TAZOBACTAM SODIUM
  7. CLOXACILLIN [Concomitant]
     Active Substance: CLOXACILLIN
  8. CYTARABINE. [Suspect]
     Active Substance: CYTARABINE
     Indication: ACUTE LEUKAEMIA
     Dosage: NOT OTHERWISE SPECIFIED
     Route: 042
     Dates: start: 20141111, end: 20141115

REACTIONS (5)
  - Drug administration error [None]
  - Product contamination [None]
  - Pyrexia [None]
  - Clostridium test positive [None]
  - Haematochezia [None]

NARRATIVE: CASE EVENT DATE: 20141119
